FAERS Safety Report 24432398 (Version 1)
Quarter: 2024Q4

REPORT INFORMATION
  Report Type: Spontaneous
  Country: US (occurrence: US)
  Receive Date: 20241014
  Receipt Date: 20241014
  Transmission Date: 20250115
  Serious: Yes (Other)
  Sender: NOVO NORDISK
  Company Number: US-NOVOPROD-1295790

PATIENT
  Age: 61 Year
  Sex: Female

DRUGS (1)
  1. OZEMPIC [Suspect]
     Active Substance: SEMAGLUTIDE
     Indication: Type 2 diabetes mellitus
     Dosage: ONCE WEEKLY
     Route: 058
     Dates: start: 20240428, end: 20240903

REACTIONS (2)
  - Tracheal polyp [Unknown]
  - Scar excision [Recovered/Resolved]

NARRATIVE: CASE EVENT DATE: 20240913
